FAERS Safety Report 14243842 (Version 1)
Quarter: 2017Q4

REPORT INFORMATION
  Report Type: Other
  Country: FR (occurrence: FR)
  Receive Date: 20171201
  Receipt Date: 20171201
  Transmission Date: 20180321
  Serious: No
  Sender: FDA-Public Use
  Company Number: FR-EXELTIS USA INC.-2036464

PATIENT
  Age: 84 Year
  Sex: Female

DRUGS (1)
  1. NUVESSA [Suspect]
     Active Substance: METRONIDAZOLE
     Indication: PERIHEPATIC ABSCESS

REACTIONS (3)
  - Dysarthria [Recovered/Resolved]
  - Psychomotor skills impaired [Recovered/Resolved]
  - Dysphagia [Recovered/Resolved]
